FAERS Safety Report 7392617-X (Version None)
Quarter: 2011Q2

REPORT INFORMATION
  Report Type: 
  Country: None (occurrence: None)
  Receive Date: 20110404
  Receipt Date: 20110325
  Transmission Date: 20111010
  Serious: Yes (Other)
  Sender: FDA-Public Use
  Company Number: US-ASTRAZENECA-2010SE24782

PATIENT
  Age: 43 Year
  Sex: Female
  Weight: 74.8 kg

DRUGS (6)
  1. SEROQUEL [Suspect]
     Route: 048
     Dates: start: 20100701, end: 20110101
  2. CLONAZEPAM [Concomitant]
  3. SERTRALINE HYDROCHLORIDE [Concomitant]
  4. SEROQUEL [Suspect]
     Indication: BIPOLAR DISORDER
     Route: 048
     Dates: end: 20100101
  5. PEPSID [Concomitant]
  6. XANAX [Concomitant]

REACTIONS (8)
  - NAUSEA [None]
  - VOMITING [None]
  - RASH PRURITIC [None]
  - BLOOD GLUCOSE INCREASED [None]
  - WEIGHT INCREASED [None]
  - ROAD TRAFFIC ACCIDENT [None]
  - GLAUCOMA [None]
  - VISUAL FIELD DEFECT [None]
